FAERS Safety Report 25353255 (Version 2)
Quarter: 2025Q3

REPORT INFORMATION
  Report Type: Report from Study
  Country: CA (occurrence: CA)
  Receive Date: 20250523
  Receipt Date: 20250716
  Transmission Date: 20251020
  Serious: Yes (Other)
  Sender: TEVA
  Company Number: CA-TEVA-VS-3312772

PATIENT
  Age: 56 Year
  Sex: Male

DRUGS (4)
  1. OCTREOTIDE [Suspect]
     Active Substance: OCTREOTIDE
     Indication: Carcinoid tumour
     Dosage: Q4WKS
     Route: 030
     Dates: start: 20221004
  2. OCTREOTIDE [Suspect]
     Active Substance: OCTREOTIDE
     Indication: Carcinoid tumour
     Dosage: Q4WKS
     Route: 030
  3. CREON [Concomitant]
     Active Substance: PANCRELIPASE AMYLASE\PANCRELIPASE LIPASE\PANCRELIPASE PROTEASE
     Indication: Product used for unknown indication
  4. Sando LAR [Concomitant]
     Indication: Product used for unknown indication

REACTIONS (2)
  - Cancer in remission [Unknown]
  - Hypertension [Unknown]
